FAERS Safety Report 6686156-9 (Version None)
Quarter: 2010Q2

REPORT INFORMATION
  Report Type: 
  Country: None (occurrence: None)
  Receive Date: 20100419
  Receipt Date: 20100408
  Transmission Date: 20101027
  Serious: Yes (Other)
  Sender: FDA-Public Use
  Company Number: PHHY2010CO04947

PATIENT
  Age: 42 Year
  Sex: Male

DRUGS (6)
  1. CERTICAN [Suspect]
     Indication: RENAL TRANSPLANT
     Dosage: 3 MG/DAY
     Route: 048
     Dates: start: 20091227, end: 20100124
  2. MYFORTIC [Suspect]
     Indication: PROPHYLAXIS
     Dosage: UNK
     Route: 048
     Dates: start: 20091227, end: 20100124
  3. MYFORTIC [Suspect]
     Indication: RENAL TRANSPLANT
  4. ENALAPRIL MALEATE [Concomitant]
  5. PREDNISOLONE [Concomitant]
  6. LOVASTATIN [Concomitant]

REACTIONS (1)
  - KIDNEY TRANSPLANT REJECTION [None]
